FAERS Safety Report 13609650 (Version 1)
Quarter: 2017Q2

REPORT INFORMATION
  Report Type: Spontaneous
  Country: US (occurrence: US)
  Receive Date: 20170602
  Receipt Date: 20170602
  Transmission Date: 20170830
  Serious: No
  Sender: FDA-Public Use
  Company Number: US-PFIZER INC-2882124

PATIENT
  Age: 3 Month
  Sex: Female
  Weight: 4.4 kg

DRUGS (1)
  1. ZINC CHLORIDE [Suspect]
     Active Substance: ZINC CHLORIDE
     Indication: PRODUCT USED FOR UNKNOWN INDICATION
     Dosage: 2.45 MG, VIA PUMP
     Route: 050
     Dates: start: 20150515

REACTIONS (3)
  - Incorrect dose administered [Recovered/Resolved]
  - Device computer issue [Recovered/Resolved]
  - No adverse event [Unknown]

NARRATIVE: CASE EVENT DATE: 20150515
